FAERS Safety Report 8945424 (Version 3)
Quarter: 2013Q1

REPORT INFORMATION
  Report Type: Spontaneous
  Country: US (occurrence: US)
  Receive Date: 20121205
  Receipt Date: 20130108
  Transmission Date: 20140127
  Serious: No
  Sender: FDA-Public Use
  Company Number: US-009507513-1212USA001122

PATIENT
  Age: 29 Year
  Sex: Female
  Weight: 81.63 kg

DRUGS (2)
  1. IMPLANON [Suspect]
     Indication: CONTRACEPTION
     Dosage: UNK
     Route: 023
     Dates: start: 20121129
  2. IMPLANON [Suspect]
     Dosage: UNK
     Route: 059
     Dates: start: 20121129

REACTIONS (2)
  - Device expulsion [Unknown]
  - No adverse event [Unknown]
